FAERS Safety Report 17112745 (Version 1)
Quarter: 2019Q4

REPORT INFORMATION
  Report Type: Spontaneous
  Country: US (occurrence: US)
  Receive Date: 20191204
  Receipt Date: 20191204
  Transmission Date: 20200122
  Serious: No
  Sender: FDA-Public Use
  Company Number: US-ELI_LILLY_AND_COMPANY-US201911013549

PATIENT
  Sex: Female

DRUGS (1)
  1. EMGALITY [Suspect]
     Active Substance: GALCANEZUMAB-GNLM
     Indication: MIGRAINE
     Dosage: 120 MG, UNKNOWN
     Route: 058

REACTIONS (6)
  - Nausea [Unknown]
  - Therapeutic product effect decreased [Unknown]
  - Migraine [Unknown]
  - Dizziness [Unknown]
  - Feeling abnormal [Recovered/Resolved]
  - Vomiting [Unknown]
